FAERS Safety Report 4264126-8 (Version None)
Quarter: 2004Q1

REPORT INFORMATION
  Report Type: 
  Country: None (occurrence: None)
  Receive Date: 20040106
  Receipt Date: 20040106
  Transmission Date: 20041129
  Serious: Yes (Other)
  Sender: FDA-Public Use
  Company Number: None

PATIENT
  Sex: Male
  Weight: 117 kg

DRUGS (3)
  1. ZOSYN [Suspect]
     Indication: FUSOBACTERIUM INFECTION
     Dosage: 13.5GM CONTINOUS INFUSION X 13 WEEKS
     Dates: start: 20031003, end: 20040105
  2. ZOSYN [Suspect]
     Indication: LIVER ABSCESS
     Dosage: 13.5GM CONTINOUS INFUSION X 13 WEEKS
     Dates: start: 20031003, end: 20040105
  3. ZOSYN [Suspect]
     Indication: STAPHYLOCOCCAL ABSCESS
     Dosage: 13.5GM CONTINOUS INFUSION X 13 WEEKS
     Dates: start: 20031003, end: 20040105

REACTIONS (1)
  - TOOTH DISCOLOURATION [None]
